FAERS Safety Report 25852581 (Version 2)
Quarter: 2025Q4

REPORT INFORMATION
  Report Type: Report from Study
  Country: CN (occurrence: CN)
  Receive Date: 20250926
  Receipt Date: 20251002
  Transmission Date: 20260117
  Serious: Yes (Other)
  Sender: GILEAD
  Company Number: CN-SHANGHAI FOSUN KAIROS BIOTECHNOLOGY CO., LTD-FOSUNKAIROS-20251302

PATIENT
  Age: 34 Year
  Sex: Male
  Weight: 71.5 kg

DRUGS (21)
  1. AXICABTAGENE CILOLEUCEL [Suspect]
     Active Substance: AXICABTAGENE CILOLEUCEL
     Indication: B-cell lymphoma
     Dosage: UNK
     Route: 042
     Dates: start: 20250905
  2. CYCLOPHOSPHAMIDE [Suspect]
     Active Substance: CYCLOPHOSPHAMIDE
     Indication: Product used for unknown indication
     Dosage: 0.95 GRAM, QD
     Route: 042
     Dates: start: 20250827, end: 20250829
  3. FLUDARABINE [Suspect]
     Active Substance: FLUDARABINE PHOSPHATE
     Indication: Product used for unknown indication
     Dosage: 27.45 MG, QD
     Route: 042
     Dates: start: 20250827, end: 20250829
  4. FLURBIPROFEN [Concomitant]
     Active Substance: FLURBIPROFEN
     Indication: Analgesic therapy
     Dosage: 1 DOSAGE FORM, BID (1 PIECE, BID)
     Route: 061
     Dates: start: 20250811, end: 20250812
  5. TRAMADOL HYDROCHLORIDE [Concomitant]
     Active Substance: TRAMADOL HYDROCHLORIDE
     Indication: Analgesic therapy
     Dosage: 0.1 G, QD
     Route: 048
     Dates: start: 20250731, end: 20250806
  6. TRAMADOL HYDROCHLORIDE [Concomitant]
     Active Substance: TRAMADOL HYDROCHLORIDE
     Dosage: 0.1 G, QD
     Route: 048
     Dates: start: 20250811, end: 20250823
  7. TRAMADOL HYDROCHLORIDE [Concomitant]
     Active Substance: TRAMADOL HYDROCHLORIDE
     Dosage: 0.1 G, BID
     Route: 048
     Dates: start: 20250825, end: 20250831
  8. FENTANYL [Concomitant]
     Active Substance: FENTANYL
     Indication: Analgesic therapy
     Dosage: 4.2 MG, QD
     Route: 061
     Dates: start: 20250802, end: 20250802
  9. HERBALS [Concomitant]
     Active Substance: HERBALS
     Indication: Renal failure
     Dosage: 5 G, QD
     Route: 048
     Dates: start: 20250909, end: 20250923
  10. MEROPENEM [Concomitant]
     Active Substance: MEROPENEM
     Indication: Febrile neutropenia
     Dosage: 1 G, TID
     Route: 042
     Dates: start: 20250909, end: 20250923
  11. MEROPENEM [Concomitant]
     Active Substance: MEROPENEM
     Dosage: 1 G, QD
     Route: 042
     Dates: start: 20250911
  12. LEVETIRACETAM [Concomitant]
     Active Substance: LEVETIRACETAM
     Indication: Epilepsy
     Dosage: 0.5 G, BID
     Route: 048
     Dates: start: 20250910
  13. LEVETIRACETAM [Concomitant]
     Active Substance: LEVETIRACETAM
     Dates: end: 20250923
  14. METHYLPREDNISOLONE SODIUM SUCCINATE [Concomitant]
     Active Substance: METHYLPREDNISOLONE SODIUM SUCCINATE
     Indication: Immune effector cell-associated neurotoxicity syndrome
     Dosage: 250 MG, BID
     Route: 042
     Dates: start: 20250911
  15. MANNITOL [Concomitant]
     Active Substance: MANNITOL
     Indication: Intracranial pressure increased
     Dosage: 125 ML, QD
     Route: 042
     Dates: start: 20250911, end: 20250911
  16. DIAZEPAM [Concomitant]
     Active Substance: DIAZEPAM
     Indication: Sedation
     Dosage: 10 MG, QD
     Route: 042
     Dates: start: 20250911, end: 20250911
  17. DROPERIDOL [Concomitant]
     Active Substance: DROPERIDOL
     Indication: Sedation
     Dosage: 5 MG, QD
     Route: 030
     Dates: start: 20250911, end: 20250911
  18. IBUPROFEN [Concomitant]
     Active Substance: IBUPROFEN
     Indication: Antipyresis
     Dosage: 10 ML, QD
     Route: 048
     Dates: start: 20250911, end: 20250911
  19. COMPOUND TROPICAMIDE [Concomitant]
     Indication: Pupil dilation procedure
     Dosage: 1 ML, QD
     Route: 050
     Dates: start: 20250911, end: 20250911
  20. ESOMEPRAZOLE SODIUM [Concomitant]
     Active Substance: ESOMEPRAZOLE SODIUM
     Indication: Symptomatic treatment
     Dosage: 40 MG, QD
     Route: 042
     Dates: start: 20250911, end: 20250923
  21. CASPOFUNGIN ACETATE [Concomitant]
     Active Substance: CASPOFUNGIN ACETATE
     Indication: Prophylaxis
     Dosage: 50 MG, QD
     Route: 042
     Dates: start: 20250911, end: 20250923

REACTIONS (1)
  - Immune effector cell-associated neurotoxicity syndrome [Recovered/Resolved]

NARRATIVE: CASE EVENT DATE: 20250911
